FAERS Safety Report 10603252 (Version 3)
Quarter: 2014Q4

REPORT INFORMATION
  Report Type: Report from Study
  Country: US (occurrence: US)
  Receive Date: 20141124
  Receipt Date: 20141229
  Transmission Date: 20150529
  Serious: Yes (Hospitalization)
  Sender: FDA-Public Use
  Company Number: US-ACTELION-A-US2014-93969

PATIENT
  Age: 46 Year
  Sex: Male

DRUGS (6)
  1. COUMADIN [Concomitant]
     Active Substance: WARFARIN SODIUM
     Dosage: 7.5 MG, UNK
  2. VELETRI [Suspect]
     Active Substance: EPOPROSTENOL
     Indication: PULMONARY ARTERIAL HYPERTENSION
     Dosage: 28 NG/KG, PER MIN
     Route: 041
     Dates: start: 20130222, end: 20141108
  3. TREPROSTINIL [Concomitant]
     Active Substance: TREPROSTINIL
     Dosage: 8.25 MG, TID
     Route: 048
  4. VELETRI [Suspect]
     Active Substance: EPOPROSTENOL
     Dosage: 24 NG/KG, PER MIN
     Route: 041
     Dates: start: 20130801
  5. REVATIO [Concomitant]
     Active Substance: SILDENAFIL CITRATE
  6. SIMVASTATIN. [Concomitant]
     Active Substance: SIMVASTATIN
     Dosage: 20 MG, Q1MONTH
     Route: 048

REACTIONS (12)
  - Catheter site erythema [Recovered/Resolved]
  - Catheter site infection [Recovered/Resolved]
  - Catheter placement [Recovered/Resolved]
  - White blood cell count increased [Recovered/Resolved]
  - Staphylococcal bacteraemia [Recovered/Resolved]
  - Flushing [Recovered/Resolved]
  - Catheter site pain [Recovered/Resolved]
  - Device related infection [Recovered/Resolved]
  - Blood culture positive [Recovered/Resolved]
  - Catheter site swelling [Recovered/Resolved]
  - Device alarm issue [Recovered/Resolved]
  - Device related sepsis [Recovered/Resolved]

NARRATIVE: CASE EVENT DATE: 20140111
